FAERS Safety Report 6611555-0 (Version None)
Quarter: 2010Q1

REPORT INFORMATION
  Report Type: 
  Country: None (occurrence: None)
  Receive Date: 20100303
  Receipt Date: 20100225
  Transmission Date: 20100710
  Serious: Yes (Other)
  Sender: FDA-Public Use
  Company Number: PHEH2008US01021

PATIENT
  Sex: Female

DRUGS (7)
  1. ELIDEL [Suspect]
     Indication: ECZEMA
     Route: 061
     Dates: start: 20020101
  2. PREVACID [Concomitant]
  3. HYDROCORTISONE [Concomitant]
  4. ALPRAZOLAM [Concomitant]
  5. DERMA-SMOOTHE/FS [Concomitant]
  6. CONDYLOX [Concomitant]
  7. URECREM [Concomitant]

REACTIONS (1)
  - MYCOSIS FUNGOIDES [None]
